FAERS Safety Report 8883075 (Version 1)
Quarter: 2012Q4

REPORT INFORMATION
  Report Type: 
  Country: US (occurrence: US)
  Receive Date: 20121102
  Receipt Date: 20121102
  Transmission Date: 20130627
  Serious: Yes (Other)
  Sender: FDA-Public Use
  Company Number: US-ABBOTT-12P-163-0913921-00

PATIENT
  Sex: Female
  Weight: 129.39 kg

DRUGS (12)
  1. BIAXIN [Suspect]
     Indication: PRODUCT USED FOR UNKNOWN INDICATION
  2. PENICILLIN [Suspect]
     Indication: PRODUCT USED FOR UNKNOWN INDICATION
  3. KEFLEX [Suspect]
     Indication: PRODUCT USED FOR UNKNOWN INDICATION
  4. MACROBID [Suspect]
     Indication: PRODUCT USED FOR UNKNOWN INDICATION
  5. CIPRO [Suspect]
     Indication: PRODUCT USED FOR UNKNOWN INDICATION
  6. METFORMIN [Concomitant]
     Indication: DIABETES MELLITUS
  7. NEXIUM [Concomitant]
     Indication: GASTROOESOPHAGEAL REFLUX DISEASE
  8. NEXIUM [Concomitant]
     Indication: GASTRITIS
  9. SYNTHROID [Concomitant]
     Indication: THYROID DISORDER
  10. SIMVASTATIN [Concomitant]
     Indication: PRODUCT USED FOR UNKNOWN INDICATION
  11. OSTEO BI-FLEX [Concomitant]
     Indication: ARTHROPATHY
     Dosage: Unknown
  12. RU-HIST FORTE [Concomitant]
     Indication: PRODUCT USED FOR UNKNOWN INDICATION
     Dosage: Unknown

REACTIONS (1)
  - Hypersensitivity [Unknown]
